FAERS Safety Report 19709627 (Version 1)
Quarter: 2021Q3

REPORT INFORMATION
  Report Type: Spontaneous
  Country: US (occurrence: US)
  Receive Date: 20210817
  Receipt Date: 20210817
  Transmission Date: 20211014
  Serious: No
  Sender: FDA-Public Use
  Company Number: US-PFIZER INC-2021253463

PATIENT
  Age: 72 Year
  Sex: Female
  Weight: 72.57 kg

DRUGS (2)
  1. PREMARIN [Suspect]
     Active Substance: ESTROGENS, CONJUGATED
     Indication: OROPHARYNGEAL SQUAMOUS CELL CARCINOMA
     Dosage: 0.5 G (QHS (BEFORE BED) 3XWK)
     Route: 067
  2. PREMARIN [Suspect]
     Active Substance: ESTROGENS, CONJUGATED
     Indication: VAGINAL DYSPLASIA
     Dosage: 1.06 OUNCE/30 GRAMS, APPLY VAGINALLY THREE TIMES A WEEK
     Route: 067

REACTIONS (2)
  - Off label use [Not Recovered/Not Resolved]
  - Laboratory test abnormal [Unknown]
